FAERS Safety Report 10276961 (Version 2)
Quarter: 2014Q3

REPORT INFORMATION
  Report Type: Spontaneous
  Country: RU (occurrence: RU)
  Receive Date: 20140703
  Receipt Date: 20140707
  Transmission Date: 20150326
  Serious: Yes (Death, Other)
  Sender: FDA-Public Use
  Company Number: RU-SA-2014SA084417

PATIENT
  Age: 83 Year
  Sex: Male
  Weight: 75 kg

DRUGS (1)
  1. CEREZYME [Suspect]
     Active Substance: IMIGLUCERASE
     Indication: GAUCHER^S DISEASE
     Dosage: 2 BOTTLES 800IU
     Route: 042
     Dates: start: 201101, end: 20140529

REACTIONS (4)
  - Death [Fatal]
  - Dyspnoea [Unknown]
  - Cardio-respiratory arrest [Unknown]
  - Asthenia [Unknown]

NARRATIVE: CASE EVENT DATE: 20140604
